FAERS Safety Report 4915794-6 (Version None)
Quarter: 2006Q1

REPORT INFORMATION
  Report Type: 
  Country: None (occurrence: None)
  Receive Date: 20060113
  Receipt Date: 20050917
  Transmission Date: 20060701
  Serious: No
  Sender: FDA-Public Use
  Company Number: 2005SP003322

PATIENT
  Age: 52 Year
  Sex: Male
  Weight: 68.0396 kg

DRUGS (4)
  1. LUNESTA [Suspect]
     Indication: INSOMNIA
     Dosage: 3 MG;HS;ORAL
     Route: 048
     Dates: start: 20050803
  2. LAMOTRIGINE [Concomitant]
  3. CYMBALTA [Concomitant]
  4. STRATTERA [Concomitant]

REACTIONS (1)
  - ROAD TRAFFIC ACCIDENT [None]
